FAERS Safety Report 16903074 (Version 1)
Quarter: 2019Q4

REPORT INFORMATION
  Report Type: Spontaneous
  Country: JP (occurrence: JP)
  Receive Date: 20191010
  Receipt Date: 20191010
  Transmission Date: 20200122
  Serious: Yes (Life-Threatening, Hospitalization, Other)
  Sender: FDA-Public Use
  Company Number: JP-AMNEAL PHARMACEUTICALS-2019-AMRX-02104

PATIENT
  Age: 48 Year
  Sex: Male

DRUGS (3)
  1. FUROSEMIDE. [Suspect]
     Active Substance: FUROSEMIDE
     Indication: OEDEMA
     Dosage: 20 MILLIGRAM, DAILY
     Route: 042
  2. TOLVAPTAN [Concomitant]
     Active Substance: TOLVAPTAN
     Indication: DIURETIC THERAPY
     Dosage: 7.5 MILLIGRAM, DAILY
     Route: 065
  3. FUROSEMIDE. [Suspect]
     Active Substance: FUROSEMIDE
     Dosage: 20 MILLIGRAM, DAILY
     Route: 065

REACTIONS (4)
  - Oedema [Recovered/Resolved]
  - Vitamin B1 decreased [Recovered/Resolved]
  - Confusional state [Recovered/Resolved]
  - Areflexia [Recovered/Resolved]
